FAERS Safety Report 6825859-X (Version None)
Quarter: 2010Q3

REPORT INFORMATION
  Report Type: 
  Country: None (occurrence: None)
  Receive Date: 20100709
  Receipt Date: 20100706
  Transmission Date: 20110219
  Serious: Yes (Hospitalization)
  Sender: FDA-Public Use
  Company Number: US-ELI_LILLY_AND_COMPANY-US201007001383

PATIENT
  Age: 68 Year
  Sex: Male

DRUGS (2)
  1. HUMALOG [Suspect]
     Indication: DIABETES MELLITUS
     Dosage: 80 U, 3/D
  2. NOVOLOG [Concomitant]

REACTIONS (5)
  - ASTHENIA [None]
  - DEHYDRATION [None]
  - HYPERGLYCAEMIA [None]
  - HYPERTENSION [None]
  - HYPONATRAEMIA [None]
